FAERS Safety Report 8187716-9 (Version None)
Quarter: 2012Q1

REPORT INFORMATION
  Report Type: 
  Country: None (occurrence: None)
  Receive Date: 20120306
  Receipt Date: 20120119
  Transmission Date: 20120608
  Serious: No
  Sender: FDA-Public Use
  Company Number: US-GLAXOSMITHKLINE-A0962420A

PATIENT
  Age: 7 Year
  Sex: Male

DRUGS (2)
  1. LAMICTAL [Suspect]
     Indication: PRODUCT USED FOR UNKNOWN INDICATION
     Dosage: 37.5MG VARIABLE DOSE
     Route: 048
     Dates: start: 20111214
  2. GABAPENTIN [Concomitant]

REACTIONS (1)
  - RASH [None]
